FAERS Safety Report 9192504 (Version 1)
Quarter: 2013Q1

REPORT INFORMATION
  Report Type: Spontaneous
  Country: US (occurrence: US)
  Receive Date: 20130327
  Receipt Date: 20130327
  Transmission Date: 20140127
  Serious: No
  Sender: FDA-Public Use
  Company Number: US-PFIZER INC-2013093531

PATIENT
  Sex: Female

DRUGS (4)
  1. NORVASC [Suspect]
     Dosage: UNK
  2. ACCURETIC [Suspect]
     Dosage: UNK
  3. AMOXICILLIN [Suspect]
     Indication: INFECTION PROPHYLAXIS
     Dosage: UNK
  4. INSULIN [Concomitant]

REACTIONS (1)
  - Scratch [Not Recovered/Not Resolved]
